FAERS Safety Report 24229019 (Version 1)
Quarter: 2024Q3

REPORT INFORMATION
  Report Type: Spontaneous
  Country: US (occurrence: US)
  Receive Date: 20240820
  Receipt Date: 20240820
  Transmission Date: 20241016
  Serious: Yes (Other)
  Sender: INSUD PHARMA
  Company Number: US-INSUD PHARMA-2408US06400

PATIENT

DRUGS (2)
  1. ALTAVERA [Suspect]
     Active Substance: ETHINYL ESTRADIOL\LEVONORGESTREL
     Indication: In vitro fertilisation
     Dosage: 1 DOSAGE FORM, QD
     Route: 048
     Dates: start: 20240802, end: 20240804
  2. ALTAVERA [Suspect]
     Active Substance: ETHINYL ESTRADIOL\LEVONORGESTREL
     Dosage: 0.5 DOSAGE FORM, SINGLE
     Route: 048
     Dates: start: 20240805, end: 20240805

REACTIONS (7)
  - Depressed level of consciousness [Unknown]
  - Headache [Unknown]
  - Hypoaesthesia [Unknown]
  - Abdominal pain upper [Not Recovered/Not Resolved]
  - Nausea [Unknown]
  - Withdrawal bleed [Not Recovered/Not Resolved]
  - Off label use [Unknown]

NARRATIVE: CASE EVENT DATE: 20240801
